FAERS Safety Report 7744505-4 (Version None)
Quarter: 2011Q3

REPORT INFORMATION
  Report Type: 
  Country: None (occurrence: None)
  Receive Date: 20110826
  Receipt Date: 20110816
  Transmission Date: 20111222
  Serious: Yes (Other)
  Sender: FDA-Public Use
  Company Number: WAES 1104USA03346

PATIENT
  Age: 69 Year
  Sex: Female

DRUGS (14)
  1. CLOPIDOGREL [Concomitant]
  2. PLACEBO [Suspect]
     Indication: ACUTE CORONARY SYNDROME
     Dosage: PO
     Route: 048
     Dates: start: 20061214
  3. COVERSYL (PERINDOPRIL ARGINNIE) [Concomitant]
  4. OLMETIC [Concomitant]
  5. LERCANIDIPINE [Concomitant]
  6. GLAZIDE [Concomitant]
  7. HYDROCHLOROTHIAZIDE (+) OLMESARTAN MEDOX [Concomitant]
  8. METFORMIN HCL [Concomitant]
  9. PRAZOSIN HCL [Concomitant]
  10. VYTORIN [Suspect]
     Indication: ACUTE CORONARY SYNDROME
     Dosage: 10-40 MG/DAILY PO
     Route: 048
     Dates: start: 20061214
  11. LERCANIDIPINE [Concomitant]
  12. METOPROLOL TARTRATE [Concomitant]
  13. PLACEBO [Suspect]
     Indication: ACUTE CORONARY SYNDROME
     Dates: start: 20061214
  14. ASPIRIN [Concomitant]

REACTIONS (3)
  - BASAL CELL CARCINOMA [None]
  - DUODENAL POLYP [None]
  - COLONIC POLYP [None]
